FAERS Safety Report 12076831 (Version 2)
Quarter: 2016Q1

REPORT INFORMATION
  Report Type: Spontaneous
  Country: US (occurrence: US)
  Receive Date: 20160215
  Receipt Date: 20160217
  Transmission Date: 20160526
  Serious: Yes (Other)
  Sender: FDA-Public Use
  Company Number: US-SUN PHARMACEUTICAL INDUSTRIES LTD-2016US-111594

PATIENT
  Sex: Female

DRUGS (1)
  1. PLAN B (LEVONORGESTREL) [Suspect]
     Active Substance: LEVONORGESTREL
     Indication: CONTRACEPTION
     Dosage: UNK
     Route: 065

REACTIONS (2)
  - Ectopic pregnancy [Unknown]
  - Ectopic pregnancy under hormonal contraception [Unknown]
